FAERS Safety Report 9040950 (Version 1)
Quarter: 2013Q1

REPORT INFORMATION
  Report Type: Spontaneous
  Country: US (occurrence: None)
  Receive Date: 20130123
  Receipt Date: 20130123
  Transmission Date: 20140127
  Serious: Yes (Hospitalization)
  Sender: FDA-Public Use
  Company Number: None

PATIENT
  Sex: Male
  Weight: 61.5 kg

DRUGS (1)
  1. PACLITAXEL (TAXOL) [Suspect]
     Dates: end: 20130108

REACTIONS (7)
  - Presyncope [None]
  - Hypotension [None]
  - Flushing [None]
  - Tachycardia [None]
  - Unresponsive to stimuli [None]
  - Anaphylactic reaction [None]
  - Drug intolerance [None]
